FAERS Safety Report 5088892-7 (Version None)
Quarter: 2006Q3

REPORT INFORMATION
  Report Type: 
  Country: None (occurrence: None)
  Receive Date: 20060824
  Receipt Date: 20060824
  Transmission Date: 20061208
  Serious: Yes (Life-Threatening, Hospitalization, Other)
  Sender: FDA-Public Use
  Company Number: None

PATIENT
  Sex: Female
  Weight: 63.5036 kg

DRUGS (2)
  1. LAMICTAL [Suspect]
     Indication: BIPOLAR DISORDER
     Dosage: TWICE DAILY
     Dates: start: 20050101
  2. LAMICTAL [Suspect]
     Indication: CONVULSION
     Dosage: TWICE DAILY
     Dates: start: 20050101

REACTIONS (3)
  - DRUG HYPERSENSITIVITY [None]
  - LOSS OF CONSCIOUSNESS [None]
  - STEVENS-JOHNSON SYNDROME [None]
